FAERS Safety Report 10063249 (Version 2)
Quarter: 2014Q2

REPORT INFORMATION
  Report Type: Report from Study
  Country: US (occurrence: DE)
  Receive Date: 20140407
  Receipt Date: 20140407
  Transmission Date: 20141212
  Serious: Yes (Hospitalization, Other)
  Sender: FDA-Public Use
  Company Number: DE-FRI-1000055235

PATIENT
  Age: 31 Year
  Sex: Male
  Weight: 85 kg

DRUGS (4)
  1. ASENAPINE [Suspect]
     Indication: BIPOLAR I DISORDER
     Dosage: 5 MG
     Dates: start: 20120802, end: 20120821
  2. OLANZAPINE [Concomitant]
     Indication: BIPOLAR DISORDER
     Dosage: 10 MG
     Dates: start: 20100118, end: 20120802
  3. OLANZAPINE [Concomitant]
     Dosage: 5 MG
     Dates: start: 20120803, end: 20120809
  4. LAMOTRIGINE [Concomitant]
     Indication: BIPOLAR DISORDER
     Dosage: 100 MG
     Dates: start: 20100118

REACTIONS (2)
  - Acute psychosis [Recovered/Resolved]
  - Drug ineffective [Recovered/Resolved]
